FAERS Safety Report 4681920-X (Version None)
Quarter: 2005Q2

REPORT INFORMATION
  Report Type: 
  Country: None (occurrence: None)
  Receive Date: 20050602
  Receipt Date: 20050517
  Transmission Date: 20051028
  Serious: Yes (Hospitalization)
  Sender: FDA-Public Use
  Company Number: 2005EU000977

PATIENT
  Age: 37 Year
  Sex: Female

DRUGS (2)
  1. PROGRAF [Suspect]
     Indication: RENAL TRANSPLANT
     Dosage: /D
  2. CORTICOSTEROIDS [Concomitant]

REACTIONS (2)
  - ENDOCARDITIS ENTEROCOCCAL [None]
  - RENAL TRANSPLANT [None]
